FAERS Safety Report 25862532 (Version 1)
Quarter: 2025Q3

REPORT INFORMATION
  Report Type: Spontaneous
  Country: JP (occurrence: JP)
  Receive Date: 20250930
  Receipt Date: 20250930
  Transmission Date: 20251020
  Serious: Yes (Other)
  Sender: AMGEN
  Company Number: JP-AMGEN-JPNSP2025142900

PATIENT
  Age: 8 Decade

DRUGS (1)
  1. IMDELLTRA [Suspect]
     Active Substance: TARLATAMAB-DLLE
     Indication: Small cell lung cancer extensive stage
     Route: 040
     Dates: start: 20250627, end: 2025

REACTIONS (2)
  - Cytokine release syndrome [Recovered/Resolved]
  - Small cell lung cancer extensive stage [Unknown]

NARRATIVE: CASE EVENT DATE: 20250628
